FAERS Safety Report 7826985-9 (Version None)
Quarter: 2011Q4

REPORT INFORMATION
  Report Type: 
  Country: None (occurrence: None)
  Receive Date: 20111018
  Receipt Date: 20111004
  Transmission Date: 20120403
  Serious: Yes (Hospitalization)
  Sender: FDA-Public Use
  Company Number: 1000024066

PATIENT
  Age: 17 Year
  Sex: Male

DRUGS (3)
  1. INVEGA (PALIPERIDONE) (PALIPERIDONE) [Concomitant]
  2. ESCITALOPRAM [Suspect]
     Indication: PSYCHOTIC DISORDER
     Dosage: ORAL
     Route: 048
  3. ESCITALOPRAM [Suspect]
     Indication: PSYCHOTIC DISORDER
     Dosage: 10 MG (10 MG,1 IN 1 D),ORAL
     Route: 048

REACTIONS (2)
  - OFF LABEL USE [None]
  - PRIAPISM [None]
